FAERS Safety Report 26099315 (Version 2)
Quarter: 2025Q4

REPORT INFORMATION
  Report Type: Spontaneous
  Country: JP (occurrence: JP)
  Receive Date: 20251128
  Receipt Date: 20251216
  Transmission Date: 20260118
  Serious: Yes (Death, Hospitalization)
  Sender: CSL BEHRING
  Company Number: JP-BEH-2025225682

PATIENT
  Sex: Male

DRUGS (1)
  1. HIZENTRA [Suspect]
     Active Substance: HUMAN IMMUNOGLOBULIN G
     Indication: Chronic inflammatory demyelinating polyradiculoneuropathy
     Dosage: 4 G, QW
     Route: 058

REACTIONS (3)
  - Death [Fatal]
  - Dyspnoea [Unknown]
  - Underdose [Unknown]

NARRATIVE: CASE EVENT DATE: 20250101
